FAERS Safety Report 8510468 (Version 3)
Quarter: 2012Q4

REPORT INFORMATION
  Report Type: 
  Country: US (occurrence: None)
  Receive Date: 20120405
  Receipt Date: 20121015
  Transmission Date: 20130627
  Serious: Yes (Other)
  Sender: FDA-Public Use
  Company Number: DSA_56007_2012

PATIENT
  Age: 21 Year
  Sex: Female
  Weight: 62.1 kg

DRUGS (43)
  1. ELIDEL [Suspect]
     Indication: DERMATITIS
     Dosage: (DF TOPICAL)
     Route: 061
     Dates: start: 2003
  2. RITUXAN [Concomitant]
  3. RITUXIMAB [Concomitant]
  4. PREDNISONE [Concomitant]
  5. LOPROX [Concomitant]
  6. VALTREX [Concomitant]
  7. PROTONIX [Concomitant]
  8. ALLOPURINOL [Concomitant]
  9. ADRIAMYCIN [Concomitant]
  10. VINCRISTINE SULFATE [Concomitant]
  11. BENADRYL EXPECTORANS [Concomitant]
  12. TYLENOL /00020001/ [Concomitant]
  13. CYTOXAN [Concomitant]
  14. DECADRON [Concomitant]
  15. COMPAZINE [Concomitant]
  16. PHENERGAN /00033002/ [Concomitant]
  17. ADVIL [Concomitant]
  18. PERCOCET [Concomitant]
  19. MORPHINE [Concomitant]
  20. ZANTAC [Concomitant]
  21. HEPARIN [Concomitant]
  22. COLACE [Concomitant]
  23. AMBIEN [Concomitant]
  24. KLONOPIN [Concomitant]
  25. ZITHROMAX [Concomitant]
  26. ANAPROX [Concomitant]
  27. VERAMYST [Concomitant]
  28. MAALOX /00091001/ [Concomitant]
  29. MOTRIN [Concomitant]
  30. NYSTATIN + TRIAMCINOLONE ACETONIDE [Concomitant]
  31. ORTHO TRI CYCLEN [Concomitant]
  32. AMOXICILLIN [Concomitant]
  33. DOXYCYCLINE [Concomitant]
  34. CEPHALEXIN [Concomitant]
  35. CLONAZEPAM [Concomitant]
  36. TERCONAZOLE [Concomitant]
  37. METRONIDAZOLE [Concomitant]
  38. PROMETHAZINE [Concomitant]
  39. AZITHROMYCIN [Concomitant]
  40. TERAZOL /00871201/ [Concomitant]
  41. METROGEL [Concomitant]
  42. CIPROFLOXACIN HYDROCHLORIDE [Concomitant]
  43. CIPROFLOXACIN [Concomitant]

REACTIONS (44)
  - Non-Hodgkin^s lymphoma [None]
  - Diffuse large B-cell lymphoma stage II [None]
  - Deep vein thrombosis [None]
  - Asthenia [None]
  - Insomnia [None]
  - Urinary tract infection [None]
  - Conjunctivitis viral [None]
  - Nausea [None]
  - Vomiting [None]
  - Keloid scar [None]
  - Food poisoning [None]
  - Simplex virus test positive [None]
  - Anaemia [None]
  - Blood lactate dehydrogenase increased [None]
  - Upper respiratory tract infection [None]
  - Pharyngitis [None]
  - Chlamydial infection [None]
  - Cellulitis [None]
  - Arthropathy [None]
  - Abdominal pain upper [None]
  - Hypophagia [None]
  - Dizziness [None]
  - Tooth disorder [None]
  - Dyspepsia [None]
  - Oral pain [None]
  - Abdominal discomfort [None]
  - Gastroenteritis viral [None]
  - Pyelonephritis [None]
  - Viral infection [None]
  - Oral pain [None]
  - Dysuria [None]
  - Syncope [None]
  - Paraesthesia [None]
  - Hypotension [None]
  - Dizziness [None]
  - Pollakiuria [None]
  - Anxiety [None]
  - Memory impairment [None]
  - Polyneuropathy [None]
  - Tricuspid valve incompetence [None]
  - Panic attack [None]
  - Postural orthostatic tachycardia syndrome [None]
  - Intervertebral disc protrusion [None]
  - Radiculopathy [None]
